FAERS Safety Report 15654942 (Version 4)
Quarter: 2019Q1

REPORT INFORMATION
  Report Type: Report from Study
  Country: US (occurrence: US)
  Receive Date: 20181126
  Receipt Date: 20190213
  Transmission Date: 20190417
  Serious: Yes (Death, Hospitalization, Other)
  Sender: FDA-Public Use
  Company Number: US-GILEAD-2018-0376127

PATIENT
  Age: 8 Year
  Sex: Male
  Weight: 23.1 kg

DRUGS (8)
  1. AMBRISENTAN [Suspect]
     Active Substance: AMBRISENTAN
     Dosage: 5 MG, QD
     Route: 048
     Dates: start: 201811
  2. ISONIAZID. [Concomitant]
     Active Substance: ISONIAZID
  3. LASIX [Concomitant]
     Active Substance: FUROSEMIDE
  4. AMBRISENTAN [Suspect]
     Active Substance: AMBRISENTAN
     Indication: PULMONARY HYPERTENSION
     Dosage: 2.5 MG, QD
     Route: 048
     Dates: start: 20181116
  5. ETHAMBUTOL [Concomitant]
     Active Substance: ETHAMBUTOL HYDROCHLORIDE
  6. SILDENAFIL. [Concomitant]
     Active Substance: SILDENAFIL
  7. PYRAZINAMIDE. [Concomitant]
     Active Substance: PYRAZINAMIDE
  8. PYRIDOXIN [Concomitant]
     Active Substance: PYRIDOXINE

REACTIONS (5)
  - Off label use [Not Recovered/Not Resolved]
  - Pulmonary arterial hypertension [Fatal]
  - Dyspnoea [Recovered/Resolved]
  - Meconium aspiration syndrome [Unknown]
  - Wrong technique in product usage process [Recovered/Resolved]

NARRATIVE: CASE EVENT DATE: 20181128
